FAERS Safety Report 23156661 (Version 3)
Quarter: 2024Q1

REPORT INFORMATION
  Report Type: Report from Study
  Country: CN (occurrence: CN)
  Receive Date: 20231107
  Receipt Date: 20240205
  Transmission Date: 20240409
  Serious: Yes (Other)
  Sender: FDA-Public Use
  Company Number: CN-ABBVIE-4727786

PATIENT
  Age: 14 Year
  Sex: Male
  Weight: 49 kg

DRUGS (15)
  1. HUMIRA [Suspect]
     Active Substance: ADALIMUMAB
     Indication: Juvenile idiopathic arthritis
     Dosage: FORM STRENGTH 40 MILLIGRAM
     Route: 058
     Dates: start: 20230211, end: 20240127
  2. HUMIRA [Suspect]
     Active Substance: ADALIMUMAB
     Dosage: FORM STRENGTH 40 MILLIGRAM
     Route: 058
  3. NAPROXEN [Concomitant]
     Active Substance: NAPROXEN
     Indication: Juvenile idiopathic arthritis
     Route: 048
     Dates: start: 20230208, end: 20230210
  4. NAPROXEN [Concomitant]
     Active Substance: NAPROXEN
     Indication: Juvenile idiopathic arthritis
     Route: 048
     Dates: start: 20230210, end: 20230406
  5. NAPROXEN [Concomitant]
     Active Substance: NAPROXEN
     Indication: Juvenile idiopathic arthritis
     Route: 048
     Dates: start: 20230407, end: 20230601
  6. NAPROXEN [Concomitant]
     Active Substance: NAPROXEN
     Indication: Juvenile idiopathic arthritis
     Route: 048
     Dates: start: 20230208, end: 20230208
  7. VOLTAREN [Concomitant]
     Active Substance: DICLOFENAC SODIUM
     Indication: Juvenile idiopathic arthritis
     Dosage: DICLOFENAC DIETHYLAMINE EMULSION
     Dates: start: 20230407
  8. METHOTREXATE [Concomitant]
     Active Substance: METHOTREXATE
     Indication: Juvenile idiopathic arthritis
     Dates: start: 20230310
  9. METHOTREXATE [Concomitant]
     Active Substance: METHOTREXATE
     Indication: Juvenile idiopathic arthritis
     Dates: start: 20230209, end: 20230309
  10. FOLIC ACID [Concomitant]
     Active Substance: FOLIC ACID
     Indication: Juvenile idiopathic arthritis
     Dosage: FIRST ADMIN DATE APR 2023
     Route: 048
     Dates: end: 20230407
  11. FOLIC ACID [Concomitant]
     Active Substance: FOLIC ACID
     Indication: Juvenile idiopathic arthritis
     Route: 048
     Dates: start: 20230407
  12. FOLIC ACID [Concomitant]
     Active Substance: FOLIC ACID
     Indication: Juvenile idiopathic arthritis
     Route: 048
     Dates: start: 20230209, end: 20230406
  13. CALCIUM CARBONATE\CHOLECALCIFEROL [Concomitant]
     Active Substance: CALCIUM CARBONATE\CHOLECALCIFEROL
     Indication: Juvenile idiopathic arthritis
     Dosage: 500 MILLIGRAM?CALCIUM CARBONATE D3
     Route: 048
     Dates: start: 20230208
  14. VITAMIN D [Concomitant]
     Active Substance: VITAMIN D NOS
     Indication: Vitamin supplementation
     Dosage: 400MG
     Route: 048
     Dates: start: 20230208
  15. DICLOFENAC DIETHYLAMINE [Concomitant]
     Active Substance: DICLOFENAC DIETHYLAMINE
     Indication: Juvenile idiopathic arthritis
     Dates: start: 20230407

REACTIONS (11)
  - Acute kidney injury [Recovered/Resolved]
  - Upper respiratory tract infection [Recovered/Resolved]
  - Upper respiratory tract infection [Recovered/Resolved]
  - Epistaxis [Recovered/Resolved]
  - Hyperbilirubinaemia [Recovered/Resolved]
  - Spinal synovial cyst [Recovering/Resolving]
  - Upper respiratory tract infection [Recovered/Resolved]
  - Acarodermatitis [Recovered/Resolved]
  - Upper respiratory tract infection [Recovered/Resolved]
  - Blood bilirubin increased [Recovering/Resolving]
  - Blood urea increased [Recovering/Resolving]

NARRATIVE: CASE EVENT DATE: 20230310
